FAERS Safety Report 23028521 (Version 1)
Quarter: 2023Q4

REPORT INFORMATION
  Report Type: Report from Study
  Country: US (occurrence: US)
  Receive Date: 20231004
  Receipt Date: 20231004
  Transmission Date: 20240110
  Serious: Yes (Other)
  Sender: FDA-Public Use
  Company Number: US-ABBVIE-4260110

PATIENT
  Age: 74 Year
  Sex: Female
  Weight: 187 kg

DRUGS (8)
  1. HUMIRA [Suspect]
     Active Substance: ADALIMUMAB
     Indication: Colitis ulcerative
     Route: 058
     Dates: start: 20160716
  2. IODINE [Suspect]
     Active Substance: IODINE
     Indication: Product used for unknown indication
     Route: 065
  3. PENICILLIN G [Suspect]
     Active Substance: PENICILLIN G
     Indication: Product used for unknown indication
     Route: 065
  4. EYSUVIS [Concomitant]
     Active Substance: LOTEPREDNOL ETABONATE
     Indication: Product used for unknown indication
     Dosage: STRENGTH: 0.25 PERCENT
     Dates: start: 20230817
  5. CLONIDINE HYDROCHLORIDE [Concomitant]
     Active Substance: CLONIDINE HYDROCHLORIDE
     Indication: Product used for unknown indication
     Dosage: STRENGTH: 0.1 MG
     Route: 048
  6. LISINOPRIL AND HYDROCHLOROTHIAZIDE [Concomitant]
     Active Substance: HYDROCHLOROTHIAZIDE\LISINOPRIL
     Indication: Product used for unknown indication
     Dosage: STRENGTH: 20-25 MG
     Route: 048
  7. SIMVASTATIN [Concomitant]
     Active Substance: SIMVASTATIN
     Indication: Product used for unknown indication
     Dosage: 20 MG
     Route: 048
  8. TRAZODONE [Concomitant]
     Active Substance: TRAZODONE HYDROCHLORIDE
     Indication: Product used for unknown indication
     Dosage: STRENGTH: 50 MG
     Route: 048

REACTIONS (20)
  - Cataract [Unknown]
  - Iodine allergy [Unknown]
  - Anaphylactic reaction [Unknown]
  - Drug hypersensitivity [Unknown]
  - Anaphylactic reaction [Unknown]
  - Colitis ulcerative [Unknown]
  - Vision blurred [Recovering/Resolving]
  - Eye pain [Not Recovered/Not Resolved]
  - Retinopathy hypertensive [Unknown]
  - Abdominal distension [Unknown]
  - Meibomian gland dysfunction [Unknown]
  - Posterior capsule opacification [Unknown]
  - Dry eye [Unknown]
  - Arthritis [Unknown]
  - Dry eye [Unknown]
  - Retinopathy hypertensive [Unknown]
  - Pain [Not Recovered/Not Resolved]
  - Dry eye [Unknown]
  - Hypercholesterolaemia [Unknown]
  - Meibomian gland dysfunction [Unknown]

NARRATIVE: CASE EVENT DATE: 20230615
